FAERS Safety Report 5113567-5 (Version None)
Quarter: 2006Q3

REPORT INFORMATION
  Report Type: 
  Country: None (occurrence: None)
  Receive Date: 20060921
  Receipt Date: 20060908
  Transmission Date: 20061208
  Serious: Yes (Hospitalization)
  Sender: FDA-Public Use
  Company Number: 2006108042

PATIENT
  Age: 51 Year
  Sex: Female
  Weight: 56.246 kg

DRUGS (6)
  1. SUTENT [Suspect]
     Indication: BREAST CANCER
     Dosage: 25 MG (25 MG, 1 IN 1 D), ORAL
     Route: 048
     Dates: start: 20060412
  2. PACLITAXEL [Suspect]
     Indication: BREAST CANCER
     Dosage: 90 MG/M*2 (90 MG*2, 3X 1 WEEK EVERY 4 WEEKS), INTRAVENOUS
     Route: 042
     Dates: start: 20060411
  3. PROCRIT [Concomitant]
  4. SENOKOT [Concomitant]
  5. PRILOSEC [Concomitant]
  6. MOTRIN [Concomitant]

REACTIONS (4)
  - CELLULITIS [None]
  - PYREXIA [None]
  - RASH [None]
  - RASH ERYTHEMATOUS [None]
